FAERS Safety Report 9210265 (Version 2)
Quarter: 2013Q2

REPORT INFORMATION
  Report Type: Report from Study
  Country: DE (occurrence: DE)
  Receive Date: 20130404
  Receipt Date: 20130508
  Transmission Date: 20140414
  Serious: Yes (Death, Hospitalization)
  Sender: FDA-Public Use
  Company Number: DE-ROCHE-1209493

PATIENT
  Age: 76 Year
  Sex: Male
  Weight: 60.8 kg

DRUGS (7)
  1. METHOXY POLYETHYLENE GLYCOL-EPOETIN BETA [Suspect]
     Indication: NEPHROGENIC ANAEMIA
     Dosage: DATE OF LAST DOSE PRIOR TO SAE:06/DEC/2011
     Route: 042
     Dates: start: 20101011, end: 20111207
  2. ASS [Concomitant]
     Route: 065
     Dates: start: 1996
  3. NEBIVOLOL [Concomitant]
     Route: 065
     Dates: start: 20101130
  4. RAMIPRIL [Concomitant]
     Route: 065
     Dates: start: 20100322
  5. FUROSEMIDE [Concomitant]
     Route: 065
     Dates: start: 2005
  6. PANTOZOL [Concomitant]
     Route: 065
     Dates: start: 20100322
  7. VIANI [Concomitant]
     Route: 065
     Dates: start: 2005

REACTIONS (2)
  - Acute myocardial infarction [Fatal]
  - Aortic stenosis [Fatal]
